FAERS Safety Report 9363622 (Version 3)
Quarter: 2013Q3

REPORT INFORMATION
  Report Type: Report from Study
  Country: US (occurrence: US)
  Receive Date: 20130624
  Receipt Date: 20130822
  Transmission Date: 20140515
  Serious: Yes (Other)
  Sender: FDA-Public Use
  Company Number: PHEH2013US012407

PATIENT
  Age: 89 Year
  Sex: Male

DRUGS (30)
  1. GLEEVEC [Suspect]
     Indication: CHRONIC MYELOID LEUKAEMIA
     Dosage: 200 MG, TID
     Route: 048
  2. GLEEVEC [Suspect]
     Dosage: UNK UKN, DAILY
     Route: 048
     Dates: start: 20130612
  3. GLEEVEC [Suspect]
     Dosage: 200 MG, DAILY
     Route: 048
  4. ARANESP [Concomitant]
  5. PROCHLORPERAZINE MALEATE [Concomitant]
     Dosage: 1 DF (EVERY 6 HOURS), PRN
     Route: 048
  6. ZYLOPRIM [Concomitant]
     Dosage: 1 DF, DAILY
     Route: 048
  7. ACETAMINOPHEN [Concomitant]
  8. ALLOPURINOL [Concomitant]
     Dosage: 1 DF, DAILY
     Route: 048
  9. ASPIRIN [Concomitant]
     Dosage: 1 DF, DAILY
     Route: 048
  10. BISCOLAX [Concomitant]
     Dosage: UNK UKN, PRN
     Route: 054
  11. BUMEX [Concomitant]
     Dosage: 1 DF, DAILY
     Route: 048
  12. CYANOCOBALAMIN [Concomitant]
     Indication: PERNICIOUS ANAEMIA
  13. EPINEPHRINE [Concomitant]
     Dosage: 0.3 MG, PRN
  14. ENEMA [Concomitant]
     Dosage: UNK UKN, PRN
     Route: 054
  15. FISH OIL [Concomitant]
     Dosage: 1 DF, DAILY
     Route: 048
  16. FLOMAX ^BOEHRINGER INGELHEIM^ [Concomitant]
     Dosage: UNK UKN, UNK
     Route: 048
  17. HALLS [Concomitant]
     Dosage: UNK UKN, PRN
  18. LOPERAMIDE HCL [Concomitant]
  19. MILK OF MAGNESIA [Concomitant]
     Dosage: 30 ML, PRN
     Route: 048
  20. OMEPRAZOLE [Concomitant]
     Dosage: 20 MG, DAILY
     Route: 048
  21. ONDANSETRON HCL [Concomitant]
     Dosage: UNK UKN, UNK
     Route: 048
  22. OSCAL 500 + D [Concomitant]
     Dosage: 1 DF, DAILY
     Route: 048
  23. OXYBUTYNIN CHLORIDE [Concomitant]
     Dosage: 1 DF, DAILY
     Route: 048
  24. PRAVASTATIN SODIUM [Concomitant]
     Dosage: UNK UKN, AT BEDTIME
     Route: 048
  25. PROBIOTIC [Concomitant]
     Dosage: 1 DF, BID
     Route: 048
  26. SENNA [Concomitant]
     Dosage: 1 DF, DAILY
     Route: 048
  27. SYSTANE [Concomitant]
     Dosage: UNK UKN, UNK
     Route: 047
  28. TOPROL XL [Concomitant]
     Dosage: UNK UKN, UNK
     Route: 048
  29. ULTRAM [Concomitant]
     Dosage: UNK UKN, UNK
     Route: 048
  30. VITAMIN D [Concomitant]
     Dosage: 1 DF, BID
     Route: 048

REACTIONS (20)
  - Renal failure chronic [Unknown]
  - Anaemia [Unknown]
  - Diverticulitis [Unknown]
  - Dehydration [Unknown]
  - Dyskinesia [Unknown]
  - Gastrointestinal disorder [Unknown]
  - Coronary artery disease [Unknown]
  - Gastric disorder [Unknown]
  - Neurological examination abnormal [Unknown]
  - Abdominal tenderness [Unknown]
  - Blood urea increased [Unknown]
  - Glomerular filtration rate decreased [Unknown]
  - Blood calcium decreased [Unknown]
  - Blood albumin decreased [Unknown]
  - Intestinal ulcer [Unknown]
  - Blood creatinine increased [Unknown]
  - Gastrooesophageal reflux disease [Unknown]
  - Colitis ulcerative [Unknown]
  - Pernicious anaemia [Unknown]
  - Oesophagitis [Unknown]
